FAERS Safety Report 14346014 (Version 1)
Quarter: 2018Q1

REPORT INFORMATION
  Report Type: Spontaneous
  Country: PT (occurrence: PT)
  Receive Date: 20180103
  Receipt Date: 20180103
  Transmission Date: 20180509
  Serious: Yes (Death, Hospitalization)
  Sender: FDA-Public Use
  Company Number: PT-MYLANLABS-2017M1081858

PATIENT
  Age: 68 Year
  Sex: Female

DRUGS (2)
  1. VANCOMYCIN [Suspect]
     Active Substance: VANCOMYCIN
     Indication: STAPHYLOCOCCUS TEST POSITIVE
  2. CEFTAZIDIME. [Concomitant]
     Active Substance: CEFTAZIDIME
     Indication: STAPHYLOCOCCUS TEST POSITIVE

REACTIONS (2)
  - Acute kidney injury [Unknown]
  - Multiple organ dysfunction syndrome [Fatal]
